FAERS Safety Report 8000228-8 (Version None)
Quarter: 2011Q4

REPORT INFORMATION
  Report Type: 
  Country: None (occurrence: None)
  Receive Date: 20111123
  Receipt Date: 20111005
  Transmission Date: 20120403
  Serious: Yes (Other)
  Sender: FDA-Public Use
  Company Number: 336639

PATIENT
  Age: 33 Year
  Sex: Male
  Weight: 182.8 kg

DRUGS (2)
  1. METFORMIN HCL [Concomitant]
  2. VICTOZA [Suspect]
     Indication: TYPE 2 DIABETES MELLITUS
     Dosage: 0.6 MG, QD, SUBCUTANEOUS
     Route: 058
     Dates: start: 20110727, end: 20110810

REACTIONS (1)
  - PANCREATITIS [None]
